FAERS Safety Report 4755936-9 (Version None)
Quarter: 2005Q3

REPORT INFORMATION
  Report Type: 
  Country: None (occurrence: None)
  Receive Date: 20050826
  Receipt Date: 20050315
  Transmission Date: 20060218
  Serious: Yes (Hospitalization, Other)
  Sender: FDA-Public Use
  Company Number: USA-2003-0006719

PATIENT
  Age: 33 Year
  Sex: Male

DRUGS (18)
  1. OXYCONTIN [Suspect]
     Indication: PAIN
     Dosage: 20 MG, BID, ORAL
     Route: 048
     Dates: start: 19990601
  2. CELEXA [Concomitant]
  3. PROZAC [Concomitant]
  4. EFFEXOR [Concomitant]
  5. BUSPAR [Concomitant]
  6. CHLORDIAZEPOXIDE W/AMITRIPTYLINE [Concomitant]
  7. XANAX [Concomitant]
  8. LORAZEPAM [Concomitant]
  9. VICODIN ES [Concomitant]
  10. PRILOSEC [Concomitant]
  11. PROPULSID [Concomitant]
  12. PAXIL [Concomitant]
  13. PANCREASE [Concomitant]
  14. PERCOCET [Concomitant]
  15. NEURONTIN [Concomitant]
  16. PREVACID [Concomitant]
  17. LEVBID [Concomitant]
  18. VIAGRA [Concomitant]

REACTIONS (19)
  - ABDOMINAL PAIN [None]
  - ACCIDENTAL OVERDOSE [None]
  - AGITATION [None]
  - CONDITION AGGRAVATED [None]
  - DEPRESSION [None]
  - DRUG ABUSER [None]
  - DRUG DEPENDENCE [None]
  - DRUG WITHDRAWAL SYNDROME [None]
  - EMOTIONAL DISTRESS [None]
  - ERECTILE DYSFUNCTION [None]
  - GASTROENTERITIS [None]
  - INADEQUATE ANALGESIA [None]
  - LOCALISED INFECTION [None]
  - MULTIPLE DRUG OVERDOSE [None]
  - OVERDOSE [None]
  - PAIN [None]
  - TINEA PEDIS [None]
  - VOMITING [None]
  - WEIGHT DECREASED [None]
